FAERS Safety Report 7959253-5 (Version None)
Quarter: 2011Q4

REPORT INFORMATION
  Report Type: 
  Country: None (occurrence: None)
  Receive Date: 20111206
  Receipt Date: 20111130
  Transmission Date: 20120403
  Serious: Yes (Other)
  Sender: FDA-Public Use
  Company Number: CN-PFIZER INC-2011291536

PATIENT
  Age: 2 Year

DRUGS (1)
  1. VFEND [Suspect]
     Indication: CENTRAL NERVOUS SYSTEM INFECTION
     Dosage: 2 DF, DAILY
     Route: 048
     Dates: start: 20110101

REACTIONS (1)
  - COMA [None]
